FAERS Safety Report 17221895 (Version 2)
Quarter: 2021Q3

REPORT INFORMATION
  Report Type: Spontaneous
  Country: CH (occurrence: CH)
  Receive Date: 20200101
  Receipt Date: 20210802
  Transmission Date: 20211014
  Serious: Yes (Other)
  Sender: FDA-Public Use
  Company Number: CH-ROCHE-2503942

PATIENT
  Age: 60 Year
  Sex: Male

DRUGS (24)
  1. BUSCOPAN [Concomitant]
     Active Substance: BUTYLSCOPOLAMINE BROMIDE
  2. MOVICOL [Concomitant]
     Active Substance: POLYETHYLENE GLYCOL 3350\POTASSIUM CHLORIDE\SODIUM BICARBONATE\SODIUM CHLORIDE
  3. MYCOSTATINE [Concomitant]
     Active Substance: NYSTATIN
  4. BECOZYME [Concomitant]
     Active Substance: VITAMINS
     Dates: start: 201911
  5. NOVORAPID [Concomitant]
     Active Substance: INSULIN ASPART
     Dates: start: 201911
  6. MG 5?LONGORAL [Concomitant]
     Active Substance: MAGNESIUM ASPARTATE
     Dates: start: 201911
  7. CLEXANE [Concomitant]
     Active Substance: ENOXAPARIN SODIUM
  8. XANAX [Concomitant]
     Active Substance: ALPRAZOLAM
  9. PREDNISONE. [Concomitant]
     Active Substance: PREDNISONE
  10. PREGABALIN. [Concomitant]
     Active Substance: PREGABALIN
     Dates: start: 20191126
  11. EFFENTORA [Concomitant]
     Active Substance: FENTANYL CITRATE
     Dates: start: 201911
  12. PROGRAF [Suspect]
     Active Substance: TACROLIMUS
     Indication: PRODUCT USED FOR UNKNOWN INDICATION
     Route: 048
     Dates: start: 201911, end: 20191120
  13. PROGRAF [Suspect]
     Active Substance: TACROLIMUS
     Route: 048
     Dates: start: 20191121
  14. PROGRAF [Suspect]
     Active Substance: TACROLIMUS
     Route: 048
     Dates: start: 20191018, end: 201911
  15. URSOFALK [Suspect]
     Active Substance: URSODIOL
     Indication: PRODUCT USED FOR UNKNOWN INDICATION
     Route: 048
     Dates: start: 201910
  16. CALCIMAGON D3 [Concomitant]
     Active Substance: CALCIUM\CHOLECALCIFEROL
  17. NEXIUM MUPS [Concomitant]
     Active Substance: ESOMEPRAZOLE
  18. CELLCEPT [Suspect]
     Active Substance: MYCOPHENOLATE MOFETIL\MYCOPHENOLATE MOFETIL HYDROCHLORIDE
     Indication: PRODUCT USED FOR UNKNOWN INDICATION
     Route: 048
     Dates: start: 20191018
  19. NEURODOL TISSUGEL [Concomitant]
     Dates: start: 201911
  20. ASPIRIN CARDIO [Concomitant]
     Active Substance: ASPIRIN
     Dates: start: 201911
  21. TIENAM [Concomitant]
     Active Substance: CILASTATIN SODIUM\IMIPENEM
  22. DAFALGAN [Concomitant]
     Active Substance: ACETAMINOPHEN
  23. NOVALGIN (METAMIZOLE SODIUM) [Concomitant]
     Active Substance: METAMIZOLE SODIUM
  24. VANCOMYCINE [Concomitant]
     Active Substance: VANCOMYCIN

REACTIONS (5)
  - Asthenia [Recovered/Resolved]
  - Tremor [Recovered/Resolved]
  - Muscle spasms [Recovering/Resolving]
  - Dysaesthesia [Recovered/Resolved]
  - Pain in extremity [Recovered/Resolved]

NARRATIVE: CASE EVENT DATE: 20191026
